FAERS Safety Report 6989377-0 (Version None)
Quarter: 2010Q3

REPORT INFORMATION
  Report Type: 
  Country: None (occurrence: None)
  Receive Date: 20100916
  Receipt Date: 20091115
  Transmission Date: 20110219
  Serious: Yes (Other)
  Sender: FDA-Public Use
  Company Number: US-PFIZER INC-2009299413

PATIENT
  Sex: Male
  Weight: 79.378 kg

DRUGS (2)
  1. LYRICA [Suspect]
     Indication: BACK PAIN
     Dosage: FREQUENCY: 4X/DAY,
     Dates: start: 20090301
  2. LYRICA [Suspect]
     Indication: NEURALGIA

REACTIONS (3)
  - DIPLOPIA [None]
  - SOMNOLENCE [None]
  - STRABISMUS [None]
